FAERS Safety Report 9414941 (Version 2)
Quarter: 2013Q3

REPORT INFORMATION
  Report Type: Report from Study
  Country: CA (occurrence: CA)
  Receive Date: 20130723
  Receipt Date: 20130816
  Transmission Date: 20140515
  Serious: Yes (Death)
  Sender: FDA-Public Use
  Company Number: CA-CELGENEUS-028-22393-13072944

PATIENT
  Age: 37 Year
  Sex: Male

DRUGS (3)
  1. ISTODAX [Suspect]
     Indication: ANAPLASTIC LARGE-CELL LYMPHOMA
     Route: 041
  2. ANTIBIOTICS [Concomitant]
     Indication: PRODUCT USED FOR UNKNOWN INDICATION
     Route: 065
  3. DEXAMETHASONE [Concomitant]
     Indication: PRODUCT USED FOR UNKNOWN INDICATION
     Route: 065

REACTIONS (1)
  - Anaplastic large-cell lymphoma [Fatal]
